FAERS Safety Report 22184117 (Version 2)
Quarter: 2023Q2

REPORT INFORMATION
  Report Type: Spontaneous
  Country: ES (occurrence: ES)
  Receive Date: 20230407
  Receipt Date: 20230417
  Transmission Date: 20230721
  Serious: Yes (Other)
  Sender: FDA-Public Use
  Company Number: None

PATIENT
  Age: 78 Year
  Sex: Female
  Weight: 60 kg

DRUGS (2)
  1. BEVACIZUMAB [Suspect]
     Active Substance: BEVACIZUMAB
     Indication: Ovarian cancer
     Dosage: UNK
     Route: 065
     Dates: start: 2023, end: 2023
  2. CARBOPLATIN [Suspect]
     Active Substance: CARBOPLATIN
     Indication: Ovarian cancer
     Dosage: UNK, 10 MG/ML CONCENTRATE FOR SOLUTION FOR INFUSION EFG, 1 VIAL OF 45 ML
     Route: 042
     Dates: start: 20230109

REACTIONS (1)
  - Type III immune complex mediated reaction [Recovering/Resolving]

NARRATIVE: CASE EVENT DATE: 20230310
